FAERS Safety Report 4543833-3 (Version None)
Quarter: 2005Q1

REPORT INFORMATION
  Report Type: 
  Country: None (occurrence: None)
  Receive Date: 20050103
  Receipt Date: 20031201
  Transmission Date: 20050727
  Serious: Yes (Death, Hospitalization)
  Sender: FDA-Public Use
  Company Number: GXKR2003DE00550

PATIENT
  Age: 85 Year
  Sex: Male

DRUGS (5)
  1. CIPROFLOXACIN [Suspect]
     Indication: URINARY TRACT INFECTION
     Dosage: ORAL
     Route: 048
  2. PRAVASTATIN SODIUM [Concomitant]
  3. CIBACEN (BENAZEPRIL HYDROCHLORIDE) [Concomitant]
  4. NOVALIN (INSULIN) [Concomitant]
  5. STEROFUNDIN (ELECTROLYTES NOS) [Concomitant]

REACTIONS (7)
  - ABDOMINAL HAEMATOMA [None]
  - ACTIVATED PARTIAL THROMBOPLASTIN TIME PROLONGED [None]
  - ANTIPHOSPHOLIPID ANTIBODIES POSITIVE [None]
  - CARDIOVASCULAR DISORDER [None]
  - FACTOR V INHIBITION [None]
  - MUSCLE HAEMORRHAGE [None]
  - PROTHROMBIN TIME SHORTENED [None]
